FAERS Safety Report 7609562-4 (Version None)
Quarter: 2011Q3

REPORT INFORMATION
  Report Type: 
  Country: None (occurrence: None)
  Receive Date: 20110714
  Receipt Date: 20110708
  Transmission Date: 20111222
  Serious: Yes (Life-Threatening)
  Sender: FDA-Public Use
  Company Number: DK-PFIZER INC-2011095389

PATIENT
  Age: 70 Year
  Sex: Female
  Weight: 70 kg

DRUGS (3)
  1. ZYVOX [Suspect]
     Indication: INFECTION
     Dosage: UNK
     Route: 042
     Dates: start: 20110211, end: 20110312
  2. MEROPENEM [Concomitant]
     Indication: INFECTION
     Dates: start: 20110128, end: 20110317
  3. CIPROFLOXACIN [Concomitant]
     Indication: INFECTION
     Dates: start: 20110129, end: 20110317

REACTIONS (3)
  - BLOOD LACTIC ACID INCREASED [None]
  - CARDIAC FAILURE [None]
  - HYPOTENSION [None]
